FAERS Safety Report 5977640-1 (Version None)
Quarter: 2008Q4

REPORT INFORMATION
  Report Type: 
  Country: None (occurrence: None)
  Receive Date: 20081203
  Receipt Date: 20081126
  Transmission Date: 20090506
  Serious: Yes (Hospitalization)
  Sender: FDA-Public Use
  Company Number: IT-MERCK-0804ITA00023

PATIENT
  Age: 40 Year
  Sex: Female

DRUGS (4)
  1. JANUVIA [Suspect]
     Indication: TYPE 2 DIABETES MELLITUS
     Route: 048
     Dates: start: 20080321, end: 20080330
  2. METFORMIN HYDROCHLORIDE [Concomitant]
     Route: 048
     Dates: start: 19920101, end: 20080407
  3. VALSARTAN [Concomitant]
     Route: 048
     Dates: start: 20060101, end: 20080407
  4. RISPERIDONE [Concomitant]
     Route: 048
     Dates: start: 20080323, end: 20080407

REACTIONS (3)
  - ANAEMIA [None]
  - FACE OEDEMA [None]
  - OEDEMA PERIPHERAL [None]
